FAERS Safety Report 9832930 (Version 5)
Quarter: 2014Q1

REPORT INFORMATION
  Report Type: Report from Study
  Country: TW (occurrence: TW)
  Receive Date: 20140121
  Receipt Date: 20140225
  Transmission Date: 20141002
  Serious: Yes (Hospitalization)
  Sender: FDA-Public Use
  Company Number: TW-MERCK-1401TWN007283

PATIENT
  Age: 78 Year
  Sex: Female
  Weight: 70 kg

DRUGS (12)
  1. SITAGLIPTIN PHOSPHATE [Suspect]
     Indication: TYPE 2 DIABETES MELLITUS
     Dosage: 100 MG, QD
     Route: 048
     Dates: start: 20100125, end: 20130716
  2. METFORMIN [Concomitant]
     Indication: TYPE 2 DIABETES MELLITUS
     Dosage: 500 MG DAILY
     Dates: start: 20130401
  3. THEOPHYLLINE [Concomitant]
     Indication: BRONCHITIS
     Dosage: 200 MG DAILY
     Dates: start: 20121005
  4. GLIMEPIRIDE [Concomitant]
     Indication: TYPE 2 DIABETES MELLITUS
     Dosage: 1 MG DAILY
     Dates: start: 20120309
  5. FAMOTIDINE [Concomitant]
     Indication: GASTRIC ULCER
     Dosage: 20 MG DAILY
     Dates: start: 20120309
  6. ALPRAZOLAM [Concomitant]
     Indication: ANXIETY
     Dosage: 0.25 MG DAILY
     Dates: start: 20130204
  7. ASPIRIN [Concomitant]
     Indication: CORONARY ARTERY DISEASE
     Dosage: 100 MG DAILY
     Dates: start: 20090917
  8. BISOPROLOL [Concomitant]
     Indication: HYPERTENSION
     Dosage: 2.5 MG DAILY
     Dates: start: 20110325
  9. AMLODIPINE BESYLATE [Concomitant]
     Indication: HYPERTENSION
     Dosage: 5 MG DAILY
     Dates: start: 20110121
  10. VALSARTAN [Concomitant]
     Indication: HYPERTENSION
     Dosage: 80 MG DAILY
     Dates: start: 20090917
  11. PENTOXIFYLLINE [Concomitant]
     Indication: DIZZINESS
     Dosage: 300MG DAILY
     Dates: start: 20121015
  12. BIPERIDEN HYDROCHLORIDE [Concomitant]
     Indication: DIZZINESS
     Dosage: 6MG DAILY
     Dates: start: 20121015

REACTIONS (1)
  - Bowen^s disease [Recovered/Resolved]
